FAERS Safety Report 16148434 (Version 1)
Quarter: 2019Q2

REPORT INFORMATION
  Report Type: Report from Study
  Country: CA (occurrence: CA)
  Receive Date: 20190402
  Receipt Date: 20190402
  Transmission Date: 20190711
  Serious: Yes (Other)
  Sender: FDA-Public Use
  Company Number: CA-JNJFOC-20190324032

PATIENT
  Age: 48 Year
  Sex: Female
  Weight: 84.7 kg

DRUGS (1)
  1. STELARA [Suspect]
     Active Substance: USTEKINUMAB
     Indication: CROHN^S DISEASE
     Route: 058
     Dates: start: 20180606

REACTIONS (2)
  - Groin abscess [Recovered/Resolved]
  - Furuncle [Unknown]

NARRATIVE: CASE EVENT DATE: 20190312
